FAERS Safety Report 16253572 (Version 3)
Quarter: 2019Q4

REPORT INFORMATION
  Report Type: Report from Study
  Country: None (occurrence: US)
  Receive Date: 20190430
  Receipt Date: 20191226
  Transmission Date: 20200122
  Serious: Yes (Hospitalization, Other)
  Sender: FDA-Public Use
  Company Number: US-ABBVIE-18K-163-2474957-00

PATIENT
  Age: 75 Year
  Sex: Female
  Weight: 63.56 kg

DRUGS (5)
  1. HUMIRA [Suspect]
     Active Substance: ADALIMUMAB
     Indication: RHEUMATOID ARTHRITIS
  2. METOPROLOL. [Concomitant]
     Active Substance: METOPROLOL
     Indication: PRODUCT USED FOR UNKNOWN INDICATION
  3. ATORVASTATIN [Concomitant]
     Active Substance: ATORVASTATIN
     Indication: PRODUCT USED FOR UNKNOWN INDICATION
  4. HUMIRA [Suspect]
     Active Substance: ADALIMUMAB
     Indication: CROHN^S DISEASE
     Route: 058
     Dates: start: 2014
  5. LEVOTHYROXINE. [Concomitant]
     Active Substance: LEVOTHYROXINE
     Indication: PRODUCT USED FOR UNKNOWN INDICATION

REACTIONS (12)
  - Cystitis [Unknown]
  - Tooth loss [Unknown]
  - Anxiety [Unknown]
  - Chronic obstructive pulmonary disease [Not Recovered/Not Resolved]
  - Thyroid disorder [Unknown]
  - Retinal detachment [Unknown]
  - Insomnia [Unknown]
  - Tooth infection [Unknown]
  - Cardiac disorder [Unknown]
  - Myocardial infarction [Unknown]
  - Fatigue [Unknown]
  - Immune system disorder [Unknown]

NARRATIVE: CASE EVENT DATE: 2015
